FAERS Safety Report 24988656 (Version 1)
Quarter: 2025Q1

REPORT INFORMATION
  Report Type: Spontaneous
  Country: US (occurrence: US)
  Receive Date: 20250220
  Receipt Date: 20250220
  Transmission Date: 20250409
  Serious: No
  Sender: TARO
  Company Number: US-TARO PHARMACEUTICALS USA INC.-2024TAR00687

PATIENT

DRUGS (2)
  1. MINOXIDIL [Suspect]
     Active Substance: MINOXIDIL
     Indication: Alopecia
     Dosage: UNK, OD, USED LESS THAN 1/2 A CAPFUL, TOPICAL TO SCALP
     Route: 061
     Dates: start: 202401
  2. FINASTERIDE [Concomitant]
     Active Substance: FINASTERIDE
     Indication: Product used for unknown indication
     Route: 065

REACTIONS (7)
  - Pruritus [Recovered/Resolved]
  - Alopecia [Recovered/Resolved]
  - Inflammation [Recovering/Resolving]
  - Insomnia [Recovered/Resolved]
  - Depression [Recovering/Resolving]
  - Off label use [Unknown]
  - Erythema [Recovering/Resolving]
